FAERS Safety Report 20206566 (Version 1)
Quarter: 2021Q4

REPORT INFORMATION
  Report Type: Spontaneous
  Country: US (occurrence: None)
  Receive Date: 20211218
  Receipt Date: 20211218
  Transmission Date: 20220304
  Serious: No
  Sender: FDA-Public Use
  Company Number: None

PATIENT
  Age: 58 Year
  Sex: Male
  Weight: 74.25 kg

DRUGS (1)
  1. SULFAMETHOXAZOLE\TRIMETHOPRIM [Suspect]
     Active Substance: SULFAMETHOXAZOLE\TRIMETHOPRIM
     Indication: Urinary tract infection
     Dosage: OTHER QUANTITY : 28 TABLET(S);?FREQUENCY : TWICE A DAY;?
     Route: 048
     Dates: start: 20211209, end: 20211215

REACTIONS (9)
  - Chills [None]
  - Pyrexia [None]
  - Oropharyngeal pain [None]
  - Back pain [None]
  - Headache [None]
  - Rash [None]
  - Swelling face [None]
  - Peripheral swelling [None]
  - Malaise [None]

NARRATIVE: CASE EVENT DATE: 20211215
